FAERS Safety Report 5856690-X (Version None)
Quarter: 2008Q3

REPORT INFORMATION
  Report Type: 
  Country: None (occurrence: None)
  Receive Date: 20080825
  Receipt Date: 20080813
  Transmission Date: 20090109
  Serious: Yes (Other)
  Sender: FDA-Public Use
  Company Number: US-PFIZER INC-2008035738

PATIENT
  Sex: Male
  Weight: 70.3 kg

DRUGS (1)
  1. LYRICA [Suspect]
     Indication: NEUROPATHY PERIPHERAL
     Route: 048

REACTIONS (3)
  - ILEOSTOMY [None]
  - INTESTINAL RESECTION [None]
  - WRONG TECHNIQUE IN DRUG USAGE PROCESS [None]
